FAERS Safety Report 8668458 (Version 3)
Quarter: 2014Q1

REPORT INFORMATION
  Report Type: Report from Study
  Country: US (occurrence: US)
  Receive Date: 20120717
  Receipt Date: 20140326
  Transmission Date: 20141002
  Serious: Yes (Hospitalization, Other)
  Sender: FDA-Public Use
  Company Number: US-ALEXION-A201201315

PATIENT
  Age: 33 Year
  Sex: Female
  Weight: 135 kg

DRUGS (5)
  1. SOLIRIS [Suspect]
     Indication: PAROXYSMAL NOCTURNAL HAEMOGLOBINURIA
     Dosage: 600 MG, QW
     Route: 042
     Dates: start: 20110408, end: 20110429
  2. SOLIRIS [Suspect]
     Dosage: 900 MG, Q2W
     Route: 042
     Dates: start: 20110506
  3. PROMETHAZINE [Concomitant]
     Indication: NAUSEA
     Dosage: 25 MG, Q 6 HRS PRN
     Route: 048
  4. FIORICET [Concomitant]
     Indication: MIGRAINE
     Dosage: 50/325-40, PRN
     Route: 048
  5. FOLIC ACID [Concomitant]
     Dosage: 1 MG, QD
     Route: 048

REACTIONS (4)
  - Arnold-Chiari malformation [Not Recovered/Not Resolved]
  - Infection [Unknown]
  - Transfusion [Not Recovered/Not Resolved]
  - Chromaturia [Recovered/Resolved]
